FAERS Safety Report 9100229 (Version 2)
Quarter: 2013Q2

REPORT INFORMATION
  Report Type: Spontaneous
  Country: BE (occurrence: BE)
  Receive Date: 20130215
  Receipt Date: 20130405
  Transmission Date: 20140414
  Serious: Yes (Hospitalization, Other)
  Sender: FDA-Public Use
  Company Number: BE-ASTRAZENECA-2013SE07851

PATIENT
  Age: 24653 Day
  Sex: Female

DRUGS (8)
  1. BRILIQUE [Suspect]
     Indication: INFARCTION
     Dosage: TWO TIMES A DAY FREQUENCY
     Route: 048
     Dates: start: 20121010, end: 20130130
  2. BRILIQUE [Suspect]
     Indication: STENT PLACEMENT
     Dosage: TWO TIMES A DAY FREQUENCY
     Route: 048
     Dates: start: 20121010, end: 20130130
  3. ASPIRIN [Suspect]
     Indication: INFARCTION
     Dosage: DAILY FREQUENCY
     Route: 048
     Dates: start: 20121010, end: 20130130
  4. ASPIRIN [Suspect]
     Indication: STENT PLACEMENT
     Dosage: DAILY FREQUENCY
     Route: 048
     Dates: start: 20121010, end: 20130130
  5. L-THYROXINE [Concomitant]
  6. BISOPROLOL [Concomitant]
     Route: 048
     Dates: start: 20121010
  7. COVERSYL [Concomitant]
     Indication: INFARCTION
  8. SIMVASTATINE [Concomitant]
     Indication: INFARCTION

REACTIONS (3)
  - Lymphoma [Unknown]
  - Gastric ulcer [Unknown]
  - Gastrointestinal haemorrhage [Recovered/Resolved]
